FAERS Safety Report 12217136 (Version 1)
Quarter: 2016Q1

REPORT INFORMATION
  Report Type: Report from Study
  Country: JP (occurrence: JP)
  Receive Date: 20160329
  Receipt Date: 20160329
  Transmission Date: 20160526
  Serious: Yes (Other)
  Sender: FDA-Public Use
  Company Number: JP-EISAI MEDICAL RESEARCH-EC-2016-015604

PATIENT
  Age: 63 Year
  Sex: Male
  Weight: 58 kg

DRUGS (7)
  1. LENVIMA [Suspect]
     Active Substance: LENVATINIB
     Route: 048
     Dates: start: 20151019, end: 20151023
  2. LENVIMA [Suspect]
     Active Substance: LENVATINIB
     Route: 048
     Dates: start: 20151117
  3. LENVIMA [Suspect]
     Active Substance: LENVATINIB
     Route: 048
     Dates: start: 20151106, end: 20151116
  4. LENVIMA [Suspect]
     Active Substance: LENVATINIB
     Route: 048
     Dates: start: 20151024, end: 20151026
  5. LEVOTHYROXINE SODIUM HYDRATE [Concomitant]
  6. LOXOPROFEN [Concomitant]
     Active Substance: LOXOPROFEN
  7. LENVIMA [Suspect]
     Active Substance: LENVATINIB
     Indication: ANAPLASTIC THYROID CANCER
     Route: 048
     Dates: start: 20150828, end: 20151018

REACTIONS (1)
  - Anaemia [Recovering/Resolving]

NARRATIVE: CASE EVENT DATE: 20151006
